FAERS Safety Report 13499816 (Version 1)
Quarter: 2017Q2

REPORT INFORMATION
  Report Type: Spontaneous
  Country: MX (occurrence: MX)
  Receive Date: 20170501
  Receipt Date: 20170501
  Transmission Date: 20170830
  Serious: Yes (Hospitalization, Disabling, Other)
  Sender: FDA-Public Use
  Company Number: MX-SA-2017SA075709

PATIENT
  Age: 67 Year
  Sex: Male

DRUGS (4)
  1. LANTUS SOLOSTAR [Suspect]
     Active Substance: INSULIN GLARGINE
     Indication: DIABETES MELLITUS
     Route: 058
     Dates: start: 2014
  2. LANTUS SOLOSTAR [Suspect]
     Active Substance: INSULIN GLARGINE
     Indication: DIABETES MELLITUS
     Route: 058
     Dates: start: 2014, end: 2014
  3. SOLOSTAR [Concomitant]
     Active Substance: DEVICE
     Indication: DIABETES MELLITUS
     Dates: start: 2014
  4. OMEPRAZOLE. [Concomitant]
     Active Substance: OMEPRAZOLE
     Indication: GASTRITIS
     Route: 048
     Dates: start: 2007

REACTIONS (3)
  - Gait disturbance [Unknown]
  - Lower limb fracture [Recovered/Resolved with Sequelae]
  - Fall [Recovered/Resolved]

NARRATIVE: CASE EVENT DATE: 201605
